FAERS Safety Report 4314874-6 (Version None)
Quarter: 2004Q1

REPORT INFORMATION
  Report Type: 
  Country: None (occurrence: None)
  Receive Date: 20040308
  Receipt Date: 20040223
  Transmission Date: 20041129
  Serious: Yes (Hospitalization)
  Sender: FDA-Public Use
  Company Number: 2004-113373-NL

PATIENT
  Age: 60 Year
  Sex: Male

DRUGS (14)
  1. DANAPAROID SODIUM [Suspect]
     Indication: DISSEMINATED INTRAVASCULAR COAGULATION
     Dosage: 2500 ANTI XA INTRAVENOUS (NOS)
     Route: 042
     Dates: start: 20030311, end: 20030322
  2. DANAPAROID SODIUM [Suspect]
     Indication: DISSEMINATED INTRAVASCULAR COAGULATION
     Dosage: 2500 ANTI XA INTRAVENOUS (NOS)
     Route: 042
     Dates: start: 20030417, end: 20030503
  3. OMEPRAZOLE [Concomitant]
  4. URINASTATIN [Concomitant]
  5. GABEXATE MESILATE [Concomitant]
  6. TIENAM [Concomitant]
  7. NAFAMOSTAT MESILATE [Concomitant]
  8. ANTITHROMBIN III [Concomitant]
  9. NITRAZEPAM [Concomitant]
  10. DOBUTAMINE HCL [Concomitant]
  11. BUPRENORPHINE HYDROCHLORIDE [Concomitant]
  12. INSULIN HUMAN [Concomitant]
  13. IMMUNOGLOBULIN HUMAN NORMAL [Concomitant]
  14. OMEGA [Concomitant]

REACTIONS (4)
  - DISSEMINATED INTRAVASCULAR COAGULATION [None]
  - GASTROINTESTINAL HAEMORRHAGE [None]
  - MULTI-ORGAN FAILURE [None]
  - PANCREATITIS ACUTE [None]
